FAERS Safety Report 18818066 (Version 1)
Quarter: 2021Q1

REPORT INFORMATION
  Report Type: Spontaneous
  Country: FR (occurrence: FR)
  Receive Date: 20210201
  Receipt Date: 20210201
  Transmission Date: 20210419
  Serious: Yes (Hospitalization)
  Sender: FDA-Public Use
  Company Number: FR-MYLANLABS-2021M1005217

PATIENT
  Age: 65 Year
  Sex: Male
  Weight: 70 kg

DRUGS (8)
  1. DOLIPRANE [Suspect]
     Active Substance: ACETAMINOPHEN
     Indication: PYREXIA
     Dosage: UNK,NON RENSEIGNEE
     Route: 048
     Dates: start: 202007, end: 202008
  2. OPDIVO [Suspect]
     Active Substance: NIVOLUMAB
     Indication: NEOPLASM MALIGNANT
     Dosage: 240 MILLIGRAM, MONTHLY
     Route: 042
     Dates: start: 20200615, end: 20200706
  3. KETOPROFEN. [Suspect]
     Active Substance: KETOPROFEN
     Indication: PYREXIA
     Dosage: UNK,NON RENSEIGNEE
     Route: 048
     Dates: start: 202007, end: 202008
  4. YERVOY [Concomitant]
     Active Substance: IPILIMUMAB
     Dosage: UNK,NON RENSEIGNEE
     Route: 042
     Dates: start: 20200615
  5. ELIQUIS [Concomitant]
     Active Substance: APIXABAN
     Dosage: 2 DOSAGE FORM, QD
     Route: 048
     Dates: start: 20200711, end: 20200715
  6. INNOHEP [Concomitant]
     Active Substance: TINZAPARIN SODIUM
     Dosage: 18000 INTERNATIONAL UNIT, QD
     Route: 058
     Dates: start: 20200711, end: 20200715
  7. KEPPRA [Concomitant]
     Active Substance: LEVETIRACETAM
     Dosage: 2 DOSAGE FORM, QD
     Route: 048
     Dates: start: 20200611, end: 20200615
  8. METOCLOPRAMIDE. [Concomitant]
     Active Substance: METOCLOPRAMIDE
     Dosage: 10 MILLIGRAM
     Route: 042

REACTIONS (1)
  - Cholestasis [Recovering/Resolving]

NARRATIVE: CASE EVENT DATE: 20200701
